FAERS Safety Report 13356745 (Version 1)
Quarter: 2017Q1

REPORT INFORMATION
  Report Type: Report from Study
  Country: BR (occurrence: BR)
  Receive Date: 20170321
  Receipt Date: 20170321
  Transmission Date: 20170429
  Serious: Yes (Other)
  Sender: FDA-Public Use
  Company Number: BR-ELI_LILLY_AND_COMPANY-BR201703007138

PATIENT
  Age: 63 Year
  Sex: Male

DRUGS (1)
  1. CETUXIMAB. [Suspect]
     Active Substance: CETUXIMAB
     Indication: PRODUCT USED FOR UNKNOWN INDICATION
     Dosage: UNK, UNKNOWN
     Route: 065

REACTIONS (13)
  - Malignant neoplasm progression [Unknown]
  - Weight decreased [Unknown]
  - Anorectal disorder [Recovered/Resolved]
  - Hypoaesthesia [Unknown]
  - Acne [Unknown]
  - Immobile [Recovered/Resolved]
  - Haematological malignancy [Recovering/Resolving]
  - Dry skin [Unknown]
  - Diarrhoea [Recovered/Resolved]
  - Deep vein thrombosis [Recovering/Resolving]
  - Skin wound [Unknown]
  - Asthenia [Recovering/Resolving]
  - Skin exfoliation [Unknown]

NARRATIVE: CASE EVENT DATE: 20170219
